FAERS Safety Report 13392577 (Version 3)
Quarter: 2017Q2

REPORT INFORMATION
  Report Type: Report from Study
  Country: GB (occurrence: GB)
  Receive Date: 20170331
  Receipt Date: 20170427
  Transmission Date: 20170830
  Serious: Yes (Other)
  Sender: FDA-Public Use
  Company Number: GB-JNJFOC-20170332849

PATIENT
  Sex: Female
  Weight: 65 kg

DRUGS (12)
  1. FOLIC ACID. [Concomitant]
     Active Substance: FOLIC ACID
     Route: 065
  2. METHOTREXATE. [Concomitant]
     Active Substance: METHOTREXATE
     Route: 065
  3. CALCIUM CARBONATE W/COLECALCIFEROL [Concomitant]
     Active Substance: CALCIUM CARBONATE\CHOLECALCIFEROL
     Dosage: 1.25G/400 UNIT
     Route: 065
  4. RAMIPRIL. [Concomitant]
     Active Substance: RAMIPRIL
     Route: 065
  5. TRAMADOL. [Concomitant]
     Active Substance: TRAMADOL
     Dosage: ONE TO TWO TABLETS FOUR TIMES DAILY WHEN REQUIRED
     Route: 065
  6. STELARA [Suspect]
     Active Substance: USTEKINUMAB
     Indication: PSORIASIS
     Dosage: PREFILLED SYRINGE
     Route: 058
     Dates: start: 20140618
  7. ALENDRONIC ACID [Concomitant]
     Active Substance: ALENDRONIC ACID
     Route: 065
  8. OMEPRAZOLE. [Concomitant]
     Active Substance: OMEPRAZOLE
     Route: 065
  9. PREDNISOLONE. [Concomitant]
     Active Substance: PREDNISOLONE
     Dosage: 4 TABLETS ONCE A DAY IN THE MORNING
     Route: 065
  10. ATORVASTATIN [Concomitant]
     Active Substance: ATORVASTATIN
     Dosage: 1 TO BE TAKEN EACH DAY
     Route: 065
  11. STELARA [Suspect]
     Active Substance: USTEKINUMAB
     Indication: PSORIASIS
     Route: 058
     Dates: start: 201506
  12. CEFALEXIN [Concomitant]
     Active Substance: CEPHALEXIN
     Dosage: HALF A TABLET TO BE TAKEN EACH DAY
     Route: 065

REACTIONS (2)
  - Pneumonia [Recovering/Resolving]
  - Fall [Unknown]
